FAERS Safety Report 11230736 (Version 1)
Quarter: 2015Q3

REPORT INFORMATION
  Report Type: Spontaneous
  Country: US (occurrence: US)
  Receive Date: 20150701
  Receipt Date: 20150701
  Transmission Date: 20151125
  Serious: Yes (Death)
  Sender: FDA-Public Use
  Company Number: US-AMEDRA PHARMACEUTICALS LLC-2015AMD00108

PATIENT
  Sex: Male

DRUGS (1)
  1. DEXTROAMPHETAMINE/AMPHETAMINE [Suspect]
     Active Substance: AMPHETAMINE\DEXTROAMPHETAMINE
     Dosage: 2080 MG, ONCE
     Route: 048

REACTIONS (11)
  - Bradycardia [Fatal]
  - Hyperhidrosis [None]
  - Overdose [Fatal]
  - Headache [Fatal]
  - Mental status changes [None]
  - Respiratory arrest [None]
  - Intentional overdose [None]
  - Hypertension [None]
  - Intracranial aneurysm [Fatal]
  - Agitation [None]
  - Disorientation [None]
